FAERS Safety Report 10081358 (Version 1)
Quarter: 2014Q2

REPORT INFORMATION
  Report Type: Spontaneous
  Country: US (occurrence: None)
  Receive Date: 20140415
  Receipt Date: 20140415
  Transmission Date: 20141212
  Serious: Yes (Death)
  Sender: FDA-Public Use
  Company Number: UTC-046933

PATIENT
  Age: 63 Year
  Sex: Male
  Weight: 63.5 kg

DRUGS (2)
  1. REMODULIN [Suspect]
     Indication: PULMONARY ARTERIAL HYPERTENSION
     Dosage: (0.033 UG/KG, 1 IN 1 MIN)
     Route: 041
     Dates: start: 20130918
  2. WARFARIN (WARFARIN) [Concomitant]

REACTIONS (1)
  - Death [None]
